FAERS Safety Report 9625035 (Version 1)
Quarter: 2013Q4

REPORT INFORMATION
  Report Type: Spontaneous
  Country: US (occurrence: US)
  Receive Date: 20131016
  Receipt Date: 20131016
  Transmission Date: 20140711
  Serious: Yes (Other)
  Sender: FDA-Public Use
  Company Number: US-AMGEN-USASP2013071455

PATIENT
  Age: 64 Year
  Sex: Female

DRUGS (3)
  1. PROLIA [Suspect]
     Indication: OSTEOPOROSIS POSTMENOPAUSAL
     Route: 065
  2. PROLIA [Suspect]
     Route: 065
  3. CLINDAMYCIN [Concomitant]

REACTIONS (3)
  - Mitral valve prolapse [Unknown]
  - Tooth disorder [Unknown]
  - Inappropriate schedule of drug administration [Unknown]
